FAERS Safety Report 4826758-5 (Version None)
Quarter: 2005Q4

REPORT INFORMATION
  Report Type: 
  Country: None (occurrence: None)
  Receive Date: 20051014
  Receipt Date: 20050620
  Transmission Date: 20060501
  Serious: No
  Sender: FDA-Public Use
  Company Number: 2005SP001505

PATIENT
  Age: 35 Year
  Sex: Male
  Weight: 93.8946 kg

DRUGS (7)
  1. LUNESTA [Suspect]
     Dosage: 2 MG;HS;ORAL ; 3 MG;HS;ORAL
     Route: 048
     Dates: start: 20050614, end: 20050623
  2. LUNESTA [Suspect]
     Dosage: 2 MG;HS;ORAL ; 3 MG;HS;ORAL
     Route: 048
     Dates: start: 20050624
  3. SEROQUEL [Concomitant]
  4. NEURONTIN [Concomitant]
  5. MELATONIN [Concomitant]
  6. KLONOPIN [Concomitant]
  7. AMBIEN [Concomitant]

REACTIONS (2)
  - DRUG INEFFECTIVE [None]
  - INSOMNIA [None]
